FAERS Safety Report 18584443 (Version 2)
Quarter: 2020Q4

REPORT INFORMATION
  Report Type: Spontaneous
  Country: US (occurrence: US)
  Receive Date: 20201207
  Receipt Date: 20201214
  Transmission Date: 20210114
  Serious: No
  Sender: FDA-Public Use
  Company Number: US-009507513-2012USA001836

PATIENT
  Sex: Female
  Weight: 93.88 kg

DRUGS (1)
  1. NEXPLANON [Suspect]
     Active Substance: ETONOGESTREL
     Dosage: 1 IMPLANT; LEFT ARM
     Route: 059
     Dates: start: 20191017, end: 20201203

REACTIONS (4)
  - Device breakage [Recovered/Resolved]
  - Device kink [Recovered/Resolved]
  - Complication of device insertion [Recovered/Resolved]
  - Implant site haemorrhage [Unknown]

NARRATIVE: CASE EVENT DATE: 20191017
